FAERS Safety Report 4668904-2 (Version None)
Quarter: 2005Q2

REPORT INFORMATION
  Report Type: 
  Country: None (occurrence: None)
  Receive Date: 20050523
  Receipt Date: 20041021
  Transmission Date: 20051028
  Serious: Yes (Other)
  Sender: FDA-Public Use
  Company Number: PHBS2004BR14024

PATIENT
  Age: 73 Year
  Sex: Female

DRUGS (6)
  1. PACLITAXEL [Concomitant]
     Dosage: UNK, UNK
     Route: 065
     Dates: start: 20010101, end: 20030401
  2. AROMATASE INHIBITOR [Concomitant]
     Dosage: UNK, UNK
     Route: 065
     Dates: start: 20010101, end: 20030401
  3. THALIDOMIDE [Concomitant]
     Dosage: UNK, UNK
     Route: 065
     Dates: start: 20010101, end: 20030401
  4. GEMCITABINE [Concomitant]
     Route: 065
     Dates: start: 20040101
  5. TAMOXIFEN [Concomitant]
     Dosage: UNK, UNK
     Route: 065
     Dates: start: 20040101
  6. ZOMETA [Suspect]
     Indication: BREAST CANCER STAGE IV
     Dosage: 4 MG, QMO
     Route: 042
     Dates: start: 20010101, end: 20030401

REACTIONS (5)
  - ASEPTIC NECROSIS BONE [None]
  - BONE TRIMMING [None]
  - PERIODONTAL DISEASE [None]
  - PROSTHESIS USER [None]
  - TOOTH EXTRACTION [None]
